FAERS Safety Report 6204263-1 (Version None)
Quarter: 2009Q2

REPORT INFORMATION
  Report Type: 
  Country: None (occurrence: None)
  Receive Date: 20090518
  Receipt Date: 20090205
  Transmission Date: 20091009
  Serious: No
  Sender: FDA-Public Use
  Company Number: WAES 0902USA00912

PATIENT
  Age: 66 Year
  Sex: Male

DRUGS (9)
  1. JANUVIA [Suspect]
     Indication: TYPE 2 DIABETES MELLITUS
     Dosage: 100 MG/DAILY/PO
     Route: 048
     Dates: start: 20090122
  2. KLOR-CON [Concomitant]
  3. LANTUS [Concomitant]
  4. CARVEDILOL [Concomitant]
  5. FUROSEMIDE [Concomitant]
  6. GLYBURIDE [Concomitant]
  7. LORATADINE [Concomitant]
  8. RAMIPRIL [Concomitant]
  9. SIMVASTATIN [Concomitant]

REACTIONS (2)
  - BLOOD GLUCOSE DECREASED [None]
  - URINARY RETENTION [None]
